FAERS Safety Report 25068881 (Version 1)
Quarter: 2025Q1

REPORT INFORMATION
  Report Type: Spontaneous
  Country: US (occurrence: None)
  Receive Date: 20250312
  Receipt Date: 20250312
  Transmission Date: 20250408
  Serious: Yes (Life-Threatening, Hospitalization)
  Sender: FDA-CTU
  Company Number: None

PATIENT
  Age: 67 Year
  Sex: Female
  Weight: 64.4 kg

DRUGS (1)
  1. PACLITAXEL [Suspect]
     Active Substance: PACLITAXEL
     Indication: Adenocarcinoma
     Route: 042
     Dates: start: 20250217, end: 20250217

REACTIONS (3)
  - Dyspnoea [None]
  - Emergency care [None]
  - Infusion related reaction [None]

NARRATIVE: CASE EVENT DATE: 20250217
